FAERS Safety Report 5228030-0 (Version None)
Quarter: 2007Q1

REPORT INFORMATION
  Report Type: 
  Country: None (occurrence: None)
  Receive Date: 20061201
  Receipt Date: 20060505
  Transmission Date: 20070707
  Serious: Yes (Hospitalization)
  Sender: FDA-Public Use
  Company Number: US017477

PATIENT
  Age: 14 Year
  Sex: Female
  Weight: 28 kg

DRUGS (3)
  1. TRISENOX [Suspect]
     Indication: ACUTE PROMYELOCYTIC LEUKAEMIA
     Dosage: 10 MG DAYS 1-5 X 5 WEEKS QD INTRAVENOUS DRIP
     Route: 041
     Dates: start: 20060306, end: 20060407
  2. TRISENOX [Suspect]
     Indication: ACUTE PROMYELOCYTIC LEUKAEMIA
     Dosage: 10 MG QD INTRAVENOUS DRIP
     Route: 041
     Dates: start: 20060401, end: 20060505
  3. ZOFRAN [Concomitant]

REACTIONS (1)
  - PYREXIA [None]
